FAERS Safety Report 4316278-9 (Version None)
Quarter: 2004Q1

REPORT INFORMATION
  Report Type: 
  Country: None (occurrence: None)
  Receive Date: 20040310
  Receipt Date: 20031010
  Transmission Date: 20041129
  Serious: Yes (Other)
  Sender: FDA-Public Use
  Company Number: HQWYE232315OCT03

PATIENT
  Age: 63 Year
  Sex: Male
  Weight: 79.45 kg

DRUGS (3)
  1. PROTONIX [Suspect]
     Indication: BARRETT'S OESOPHAGUS
     Dosage: 20 MG 1 X PER 1 DAY ORAL
     Route: 048
     Dates: start: 20030101
  2. RHINOCORT [Concomitant]
  3. LISINOPRIL [Concomitant]

REACTIONS (2)
  - DRUG INTERACTION [None]
  - INSOMNIA [None]
